FAERS Safety Report 5264643-8 (Version None)
Quarter: 2007Q1

REPORT INFORMATION
  Report Type: 
  Country: None (occurrence: None)
  Receive Date: 20061124
  Receipt Date: 20060725
  Transmission Date: 20070707
  Serious: Yes (Other)
  Sender: FDA-Public Use
  Company Number: HQWYE386126JUL06

PATIENT
  Age: 31 Year
  Sex: Female
  Weight: 75.82 kg

DRUGS (5)
  1. TRIPHASIL-28 [Suspect]
     Indication: CONTRACEPTION
     Dosage: 1 TABLET 1X PER 1 DAY, SUBLINGUAL
     Route: 060
     Dates: start: 19990503, end: 20060711
  2. ANTIBIOTICS (ANTIBIOTICS) [Concomitant]
  3. ZITHROMAX [Concomitant]
  4. MULTI-VITAMINS [Concomitant]
  5. TYLENOL [Concomitant]

REACTIONS (4)
  - DIARRHOEA [None]
  - DRUG INEFFECTIVE [None]
  - PYREXIA [None]
  - UNINTENDED PREGNANCY [None]
